FAERS Safety Report 9177454 (Version 1)
Quarter: 2013Q1

REPORT INFORMATION
  Report Type: Spontaneous
  Country: US (occurrence: US)
  Receive Date: 20130321
  Receipt Date: 20130321
  Transmission Date: 20140127
  Serious: No
  Sender: FDA-Public Use
  Company Number: US-MYLANLABS-2012S1025763

PATIENT
  Age: 72 Year
  Sex: Female

DRUGS (5)
  1. ALBUTEROL SULFATE INHALATION SOLUTION [Suspect]
     Indication: BRONCHOSPASM
     Route: 055
     Dates: start: 2011, end: 201208
  2. ALBUTEROL SULFATE INHALATION SOLUTION [Suspect]
     Indication: BRONCHOSPASM
     Route: 055
     Dates: start: 201212
  3. CYCLOBENZAPRINE HYDROCHLORIDE [Suspect]
     Indication: MUSCLE RELAXANT THERAPY
     Route: 048
     Dates: start: 2011, end: 201208
  4. DIOVAN [Suspect]
     Indication: BLOOD PRESSURE INCREASED
     Route: 048
     Dates: start: 2011, end: 201208
  5. DIOVAN [Suspect]
     Indication: BLOOD PRESSURE INCREASED
     Route: 048
     Dates: start: 201212

REACTIONS (6)
  - Suicidal ideation [Recovered/Resolved]
  - Depression [Recovered/Resolved]
  - Anxiety [Recovered/Resolved]
  - Pruritus [Recovered/Resolved]
  - Muscular weakness [Recovered/Resolved]
  - Nervousness [Not Recovered/Not Resolved]
